FAERS Safety Report 18229733 (Version 4)
Quarter: 2020Q4

REPORT INFORMATION
  Report Type: Report from Study
  Country: US (occurrence: US)
  Receive Date: 20200903
  Receipt Date: 20201203
  Transmission Date: 20210113
  Serious: Yes (Hospitalization)
  Sender: FDA-Public Use
  Company Number: NVSC2020US238401

PATIENT
  Sex: Male

DRUGS (1)
  1. OMNITROPE [Suspect]
     Active Substance: SOMATROPIN
     Indication: PRODUCT USED FOR UNKNOWN INDICATION
     Dosage: 5 MG, QD
     Route: 058

REACTIONS (6)
  - Rash [Unknown]
  - Tonsillar disorder [Unknown]
  - Illness [Unknown]
  - Pyrexia [Unknown]
  - Pharyngitis streptococcal [Unknown]
  - Scarlet fever [Unknown]
